FAERS Safety Report 6094866-X (Version None)
Quarter: 2009Q1

REPORT INFORMATION
  Report Type: 
  Country: None (occurrence: None)
  Receive Date: 20090227
  Receipt Date: 20090223
  Transmission Date: 20090719
  Serious: Yes (Hospitalization)
  Sender: FDA-Public Use
  Company Number: FR-JNJFOC-20090205539

PATIENT
  Age: 46 Year
  Sex: Male

DRUGS (6)
  1. OFLOCET [Suspect]
     Indication: ABSCESS LIMB
     Route: 048
  2. RIFADIN [Suspect]
     Indication: ABSCESS LIMB
     Route: 048
  3. CORTANCYL [Concomitant]
     Route: 065
  4. PLAQUENIL [Concomitant]
     Route: 065
  5. MOPRAL [Concomitant]
     Route: 065
  6. MINISINTROM [Concomitant]
     Route: 048

REACTIONS (3)
  - LEUKOPENIA [None]
  - PYREXIA [None]
  - TOXIC SKIN ERUPTION [None]
